FAERS Safety Report 5924240-5 (Version None)
Quarter: 2008Q4

REPORT INFORMATION
  Report Type: 
  Country: None (occurrence: None)
  Receive Date: 20081020
  Receipt Date: 20081015
  Transmission Date: 20090506
  Serious: Yes (Disabling, Other)
  Sender: FDA-Public Use
  Company Number: GR-PFIZER INC-2008086487

PATIENT
  Age: 50 Year
  Sex: Male

DRUGS (5)
  1. MEDROL [Suspect]
     Indication: RENAL DISORDER
     Route: 048
     Dates: start: 20080101
  2. DILATREND [Concomitant]
     Indication: HYPERTENSION
     Route: 048
     Dates: start: 20080101
  3. LIPITOR [Concomitant]
     Indication: HYPERLIPIDAEMIA
     Route: 048
     Dates: start: 20080101
  4. CELLCEPT [Concomitant]
     Route: 048
     Dates: start: 20080101
  5. VARIOUS ALIMENTARY TRACT + METABOLISM PRODUCT [Concomitant]
     Indication: PROPHYLAXIS
     Route: 048
     Dates: start: 20080101

REACTIONS (4)
  - ACNE [None]
  - DEPRESSED MOOD [None]
  - HYPOAESTHESIA [None]
  - MYOPATHY [None]
